FAERS Safety Report 20680493 (Version 1)
Quarter: 2022Q2

REPORT INFORMATION
  Report Type: Spontaneous
  Country: IN (occurrence: None)
  Receive Date: 20220406
  Receipt Date: 20220406
  Transmission Date: 20220721
  Serious: Yes (Death)
  Sender: FDA-Public Use
  Company Number: IN-ROCHE-2504326

PATIENT
  Age: 81 Year
  Sex: Female

DRUGS (1)
  1. KADCYLA [Suspect]
     Active Substance: ADO-TRASTUZUMAB EMTANSINE
     Indication: Breast cancer metastatic
     Route: 042
     Dates: start: 20191012

REACTIONS (4)
  - Asthenia [Unknown]
  - Headache [Unknown]
  - Visual impairment [Unknown]
  - Death [Fatal]

NARRATIVE: CASE EVENT DATE: 20211027
